FAERS Safety Report 22016495 (Version 1)
Quarter: 2023Q1

REPORT INFORMATION
  Report Type: Spontaneous
  Country: CO (occurrence: CO)
  Receive Date: 20230221
  Receipt Date: 20230221
  Transmission Date: 20230417
  Serious: Yes (Other)
  Sender: FDA-Public Use
  Company Number: CO-TAKEDA-2023TUS017215

PATIENT
  Age: 32 Year
  Sex: Male
  Weight: 100 kg

DRUGS (6)
  1. PONATINIB [Suspect]
     Active Substance: PONATINIB
     Indication: Chronic myeloid leukaemia
     Dosage: 30 MILLIGRAM, QD
     Route: 048
     Dates: start: 20221104
  2. ESOMEPRAZOLE [Concomitant]
     Active Substance: ESOMEPRAZOLE
     Indication: Gastritis
     Dosage: 20 MILLIGRAM, QD
     Route: 048
     Dates: start: 20220401
  3. FLUOROMETHOLONE ACETATE [Concomitant]
     Active Substance: FLUOROMETHOLONE ACETATE
     Indication: Conjunctivitis allergic
     Dosage: UNK, Q8HR
     Route: 047
     Dates: start: 20221011
  4. ALCAFTADINE [Concomitant]
     Active Substance: ALCAFTADINE
     Indication: Conjunctivitis allergic
     Dosage: UNK, Q12H
     Route: 047
     Dates: start: 20221011
  5. PROPYLENE GLYCOL [Concomitant]
     Active Substance: PROPYLENE GLYCOL
     Indication: Conjunctivitis allergic
     Dosage: UNK, Q4HR
     Route: 047
     Dates: start: 20221011
  6. TADALAFILO [Concomitant]
     Indication: Erectile dysfunction
     Dosage: 5 MILLIGRAM, QD
     Route: 048
     Dates: start: 20221201

REACTIONS (2)
  - Dermatitis [Not Recovered/Not Resolved]
  - Dry eye [Not Recovered/Not Resolved]

NARRATIVE: CASE EVENT DATE: 20230124
